FAERS Safety Report 9784714 (Version 1)
Quarter: 2013Q4

REPORT INFORMATION
  Report Type: Spontaneous
  Country: GB (occurrence: GB)
  Receive Date: 20131227
  Receipt Date: 20131227
  Transmission Date: 20140711
  Serious: Yes (Hospitalization)
  Sender: FDA-Public Use
  Company Number: GB-ASTRAZENECA-2013SE92903

PATIENT
  Age: 86 Year
  Sex: 0

DRUGS (1)
  1. OMEPRAZOLE [Suspect]
     Route: 048

REACTIONS (1)
  - Clostridium difficile infection [Recovered/Resolved]
